FAERS Safety Report 17913732 (Version 1)
Quarter: 2020Q2

REPORT INFORMATION
  Report Type: Spontaneous
  Country: AT (occurrence: AT)
  Receive Date: 20200618
  Receipt Date: 20200618
  Transmission Date: 20200714
  Serious: Yes (Other)
  Sender: FDA-Public Use
  Company Number: AT-BRISTOL-MYERS SQUIBB COMPANY-BMS-2020-047107

PATIENT
  Age: 47 Year
  Sex: Male

DRUGS (2)
  1. NIVOLUMAB [Suspect]
     Active Substance: NIVOLUMAB
     Indication: MALIGNANT MELANOMA
     Dosage: 3 MILLIGRAM/KILOGRAM
     Route: 042
     Dates: start: 201807
  2. IPILIMUMAB [Suspect]
     Active Substance: IPILIMUMAB
     Indication: MALIGNANT MELANOMA
     Dosage: 3 MILLIGRAM/KILOGRAM, Q3WK
     Route: 042
     Dates: start: 201903

REACTIONS (4)
  - Optic neuritis [Unknown]
  - Facial paralysis [Unknown]
  - Synovitis [Unknown]
  - Encephalomyelitis [Unknown]
